FAERS Safety Report 4476316-X (Version None)
Quarter: 2004Q4

REPORT INFORMATION
  Report Type: 
  Country: None (occurrence: None)
  Receive Date: 20041016
  Receipt Date: 20041007
  Transmission Date: 20050328
  Serious: Yes (Hospitalization)
  Sender: FDA-Public Use
  Company Number: AU-MERCK-0410AUS00112

PATIENT
  Age: 67 Year
  Sex: Female

DRUGS (1)
  1. VIOXX [Suspect]
     Route: 065
     Dates: start: 20010101, end: 20040101

REACTIONS (6)
  - CARDIAC FAILURE [None]
  - CHEST PAIN [None]
  - COLONIC STENOSIS [None]
  - FATIGUE [None]
  - MALNUTRITION [None]
  - VENTRICULAR TACHYCARDIA [None]
